FAERS Safety Report 23443008 (Version 1)
Quarter: 2024Q1

REPORT INFORMATION
  Report Type: Spontaneous
  Country: US (occurrence: US)
  Receive Date: 20240125
  Receipt Date: 20240125
  Transmission Date: 20240410
  Serious: Yes (Other)
  Sender: FDA-Public Use
  Company Number: US-PFIZER INC-PV202400010541

PATIENT
  Age: 74 Year
  Sex: Female
  Weight: 95.601 kg

DRUGS (2)
  1. IBRANCE [Suspect]
     Active Substance: PALBOCICLIB
     Indication: Breast cancer metastatic
     Dosage: TAKE 1 TABLET DAILY ON DAYS 1-21 EVERY 28 DAYS
     Route: 048
  2. ARIMIDEX [Suspect]
     Active Substance: ANASTROZOLE
     Dosage: UNK

REACTIONS (2)
  - Neutropenia [Unknown]
  - White blood cell count decreased [Unknown]
